FAERS Safety Report 9929869 (Version 1)
Quarter: 2014Q1

REPORT INFORMATION
  Report Type: Spontaneous
  Country: US (occurrence: US)
  Receive Date: 20140227
  Receipt Date: 20140227
  Transmission Date: 20141002
  Serious: No
  Sender: FDA-Public Use
  Company Number: US-GILEAD-2012-0061379

PATIENT
  Age: 45 Year
  Sex: Female
  Weight: 66.21 kg

DRUGS (2)
  1. COMPLERA [Suspect]
     Indication: HIV INFECTION
     Dosage: UNK
     Route: 048
     Dates: start: 20120208, end: 20120328
  2. VALTREX [Concomitant]
     Indication: UNEVALUABLE EVENT
     Dosage: UNK
     Dates: start: 20120202

REACTIONS (2)
  - Anxiety [Recovered/Resolved]
  - Depression [Recovered/Resolved]
